FAERS Safety Report 4863919-3 (Version None)
Quarter: 2005Q4

REPORT INFORMATION
  Report Type: 
  Country: None (occurrence: None)
  Receive Date: 20051219
  Receipt Date: 20051213
  Transmission Date: 20060501
  Serious: Yes (Death, Hospitalization)
  Sender: FDA-Public Use
  Company Number: UKP05000414

PATIENT
  Age: 87 Year
  Sex: Female

DRUGS (7)
  1. ACTONEL [Suspect]
     Indication: OSTEOPOROSIS
     Dosage: 35 MG, 1/WEEK, ORAL
     Route: 048
     Dates: start: 20051114
  2. ADCAL (CARBAZOCHROME) [Concomitant]
  3. AMLODIPINE [Concomitant]
  4. CAPTOPRIL [Concomitant]
  5. PERSANTIN [Concomitant]
  6. GTN (GLYCERYL TRINITRATE) [Concomitant]
  7. RABEPRAZOLE SODIUM [Concomitant]

REACTIONS (3)
  - ABDOMINAL PAIN [None]
  - DIVERTICULAR PERFORATION [None]
  - PERITONITIS [None]
